FAERS Safety Report 12538239 (Version 2)
Quarter: 2016Q3

REPORT INFORMATION
  Report Type: Spontaneous
  Country: IT (occurrence: IT)
  Receive Date: 20160707
  Receipt Date: 20160728
  Transmission Date: 20161109
  Serious: Yes (Other)
  Sender: FDA-Public Use
  Company Number: IT-GILEAD-2016-0221463

PATIENT
  Age: 56 Year
  Sex: Male
  Weight: 65 kg

DRUGS (4)
  1. DAKLINZA [Suspect]
     Active Substance: DACLATASVIR
     Indication: CHRONIC HEPATITIS C
     Dosage: 60 MG, QD
     Route: 048
     Dates: start: 20150529, end: 20151112
  2. REBETOL [Suspect]
     Active Substance: RIBAVIRIN
     Indication: CHRONIC HEPATITIS C
     Dosage: 1000 MG, QD
     Route: 048
     Dates: start: 20150529, end: 20151112
  3. SOVALDI [Suspect]
     Active Substance: SOFOSBUVIR
     Indication: CHRONIC HEPATITIS C
     Dosage: 400 MG, QD
     Route: 048
     Dates: start: 20150529, end: 20151112
  4. ESKIM [Concomitant]
     Active Substance: OMEGA-3 FATTY ACIDS
     Dosage: 3000 MG, UNK
     Route: 048
     Dates: start: 20140701

REACTIONS (3)
  - Hepatocellular carcinoma [Recovered/Resolved]
  - Hepatic cancer [Recovered/Resolved]
  - Hepatic lesion [Recovered/Resolved]

NARRATIVE: CASE EVENT DATE: 20150625
